FAERS Safety Report 4535852-8 (Version None)
Quarter: 2004Q4

REPORT INFORMATION
  Report Type: 
  Country: None (occurrence: None)
  Receive Date: 20041223
  Receipt Date: 20040426
  Transmission Date: 20050328
  Serious: No
  Sender: FDA-Public Use
  Company Number: US-GLAXOSMITHKLINE-A0508439A

PATIENT
  Sex: Female

DRUGS (3)
  1. FLONASE [Suspect]
     Dosage: 4SPR PER DAY
     Route: 045
     Dates: end: 20040405
  2. ZYRTEC-D 12 HOUR [Concomitant]
  3. PRENATAL VITAMINS [Concomitant]

REACTIONS (2)
  - CYST [None]
  - DRUG EXPOSURE DURING PREGNANCY [None]
